FAERS Safety Report 8024356-6 (Version None)
Quarter: 2012Q1

REPORT INFORMATION
  Report Type: 
  Country: None (occurrence: None)
  Receive Date: 20120105
  Receipt Date: 20120103
  Transmission Date: 20120608
  Serious: Yes (Other)
  Sender: FDA-Public Use
  Company Number: PHHY2012NL000698

PATIENT
  Sex: Female

DRUGS (3)
  1. ZOMETA [Suspect]
     Dosage: 4 MG/5ML ONCE PER 28 DAYS FOR THE TREATMENT
     Route: 042
     Dates: start: 20111111
  2. ZOMETA [Suspect]
     Dosage: 4 MG/5ML ONCE PER 28 DAYS FOR THE TREATMENT
     Route: 042
     Dates: start: 20120103
  3. ZOMETA [Suspect]
     Indication: BREAST CANCER METASTATIC
     Dosage: 4 MG/5ML ONCE PER 28 DAYS FOR THE TREATMENT
     Route: 042
     Dates: start: 20101014

REACTIONS (1)
  - THROMBOSIS [None]
